FAERS Safety Report 5443015-7 (Version None)
Quarter: 2007Q3

REPORT INFORMATION
  Report Type: 
  Country: None (occurrence: None)
  Receive Date: 20070905
  Receipt Date: 20070829
  Transmission Date: 20080115
  Serious: Yes (Hospitalization)
  Sender: FDA-Public Use
  Company Number: PHBS2007BR14399

PATIENT
  Age: 2 Year
  Sex: Female
  Weight: 17 kg

DRUGS (4)
  1. LASIX [Concomitant]
     Route: 042
  2. RANITIDINE [Concomitant]
     Route: 048
  3. PREXONA [Concomitant]
  4. SANDIMMUNE [Suspect]
     Indication: NEPHROTIC SYNDROME
     Dosage: 25 MG, BID
     Route: 048

REACTIONS (10)
  - ABDOMINAL DISTENSION [None]
  - BLOOD PRESSURE INCREASED [None]
  - COUGH [None]
  - DRUG INEFFECTIVE [None]
  - HYPERSENSITIVITY [None]
  - NASOPHARYNGITIS [None]
  - PROTEIN TOTAL DECREASED [None]
  - SWELLING [None]
  - URINARY RETENTION [None]
  - WRONG TECHNIQUE IN DRUG USAGE PROCESS [None]
